FAERS Safety Report 10402081 (Version 1)
Quarter: 2014Q3

REPORT INFORMATION
  Report Type: Spontaneous
  Country: US (occurrence: US)
  Receive Date: 20140822
  Receipt Date: 20140822
  Transmission Date: 20150326
  Serious: No
  Sender: FDA-Public Use
  Company Number: US-009507513-1408USA009206

PATIENT
  Sex: Female
  Weight: 113.38 kg

DRUGS (3)
  1. NEXPLANON [Suspect]
     Active Substance: ETONOGESTREL
     Dosage: UNIT INSERTED INTO HER OTHER ARM (UNSPECIFIED WHICH ARM)
     Route: 059
     Dates: start: 20140813
  2. NEXPLANON [Suspect]
     Active Substance: ETONOGESTREL
     Dosage: NEXPLANON ROD IN THE PATIENT^S ARM
     Route: 059
     Dates: start: 20140813, end: 20140813
  3. IMPLANON [Suspect]
     Active Substance: ETONOGESTREL
     Dosage: 68MG/ ONE ROD INSERTED EVERY THREE YEARS, IN HER ARM
     Route: 059
     Dates: end: 20140813

REACTIONS (4)
  - Device kink [Recovered/Resolved]
  - Haemorrhage [Unknown]
  - Device dislocation [Recovered/Resolved]
  - Device difficult to use [Recovered/Resolved]

NARRATIVE: CASE EVENT DATE: 20140813
